FAERS Safety Report 6895611-8 (Version None)
Quarter: 2010Q3

REPORT INFORMATION
  Report Type: 
  Country: None (occurrence: None)
  Receive Date: 20100802
  Receipt Date: 20100729
  Transmission Date: 20110219
  Serious: Yes (Death, Hospitalization)
  Sender: FDA-Public Use
  Company Number: PHHY2010CA22481

PATIENT
  Sex: Male

DRUGS (1)
  1. SANDOSTATIN LAR [Suspect]
     Indication: METASTASES TO LIVER
     Dosage: 20 MG, EVERY 4 WEEKS
     Route: 030
     Dates: start: 20091126, end: 20100315

REACTIONS (6)
  - DEATH [None]
  - DYSPNOEA [None]
  - MALIGNANT NEOPLASM PROGRESSION [None]
  - PAIN [None]
  - PLEURAL EFFUSION [None]
  - TERMINAL STATE [None]
